FAERS Safety Report 8555161-X (Version None)
Quarter: 2012Q3

REPORT INFORMATION
  Report Type: 
  Country: None (occurrence: None)
  Receive Date: 20120731
  Receipt Date: 20120724
  Transmission Date: 20120928
  Serious: No
  Sender: FDA-Public Use
  Company Number: GB-ABBOTT-12P-167-0908833-00

PATIENT
  Age: 43 Year
  Sex: Female

DRUGS (2)
  1. HUMIRA [Suspect]
     Indication: ANKYLOSING SPONDYLITIS
     Route: 058
  2. HUMIRA [Suspect]

REACTIONS (5)
  - UTERINE CERVICAL EROSION [None]
  - CERVIX INFLAMMATION [None]
  - ARTHROPATHY [None]
  - GRANULOMA [None]
  - COITAL BLEEDING [None]
